FAERS Safety Report 12694278 (Version 6)
Quarter: 2019Q1

REPORT INFORMATION
  Report Type: Spontaneous
  Country: US (occurrence: US)
  Receive Date: 20160829
  Receipt Date: 20190128
  Transmission Date: 20190417
  Serious: Yes (Other)
  Sender: FDA-Public Use
  Company Number: US-PFIZER INC-2016404502

PATIENT
  Age: 43 Year
  Sex: Female
  Weight: 122 kg

DRUGS (7)
  1. LEVOTHYROXINE. [Concomitant]
     Active Substance: LEVOTHYROXINE
     Indication: HYPOTHYROIDISM
     Dosage: 150 UG, 1X/DAY
     Route: 048
  2. LYRICA [Suspect]
     Active Substance: PREGABALIN
     Indication: LUMBAR RADICULOPATHY
     Dosage: 75 MG, 2X/DAY (Q 12 HOURS)
     Route: 048
  3. METOPROLOL. [Concomitant]
     Active Substance: METOPROLOL
     Dosage: UNK
  4. ATORVASTATIN [Concomitant]
     Active Substance: ATORVASTATIN
     Dosage: UNK
  5. LYRICA [Suspect]
     Active Substance: PREGABALIN
     Indication: FIBROMYALGIA
     Dosage: 150 MG, 2X/DAY [Q 12 HOURS]
     Route: 048
     Dates: start: 201607
  6. PROTONIX [Concomitant]
     Active Substance: PANTOPRAZOLE SODIUM
     Dosage: UNK
  7. PANTOPRAZOLE [Concomitant]
     Active Substance: PANTOPRAZOLE
     Indication: GASTROOESOPHAGEAL REFLUX DISEASE
     Dosage: 200 MG, DAILY (40 MG 5 TIMES A DAY)
     Route: 048

REACTIONS (9)
  - Pain in extremity [Unknown]
  - Blood disorder [Unknown]
  - Burning sensation [Unknown]
  - Onychoclasis [Unknown]
  - Limb injury [Unknown]
  - Anaemia [Unknown]
  - Musculoskeletal pain [Unknown]
  - Rash [Unknown]
  - Back pain [Unknown]

NARRATIVE: CASE EVENT DATE: 201611
